FAERS Safety Report 9516276 (Version 1)
Quarter: 2013Q3

REPORT INFORMATION
  Report Type: Spontaneous
  Country: GB (occurrence: None)
  Receive Date: 20130909
  Receipt Date: 20130909
  Transmission Date: 20140515
  Serious: Yes (Other)
  Sender: FDA-Public Use
  Company Number: 2013GMK006690

PATIENT
  Age: 12 Year
  Sex: Male

DRUGS (3)
  1. TOPIRAMATE [Suspect]
     Indication: MIGRAINE PROPHYLAXIS
     Route: 048
  2. IBUPROFEN [Concomitant]
  3. SUMATRIPTAN [Concomitant]

REACTIONS (3)
  - Adenoiditis [None]
  - Tonsillitis [None]
  - Pyrexia [None]
